FAERS Safety Report 9868287 (Version 2)
Quarter: 2014Q2

REPORT INFORMATION
  Report Type: Spontaneous
  Country: BR (occurrence: BR)
  Receive Date: 20140204
  Receipt Date: 20140630
  Transmission Date: 20141212
  Serious: No
  Sender: FDA-Public Use
  Company Number: BR-B.I. PHARMACEUTICALS,INC./RIDGEFIELD-2014-BI-03909BR

PATIENT
  Age: 63 Year
  Sex: Male

DRUGS (4)
  1. TRAYENTA [Suspect]
     Indication: DIABETES MELLITUS
     Dosage: 5 MG
     Route: 048
     Dates: start: 201401
  2. RAZOLIS [Concomitant]
     Indication: HYPERTENSION
     Route: 048
     Dates: start: 201310
  3. ATENOLOL [Concomitant]
     Indication: HYPERTENSION
     Dosage: 12.5 MG
     Route: 048
  4. MEVILIP [Concomitant]
     Indication: BLOOD CHOLESTEROL INCREASED
     Route: 048
     Dates: start: 201405

REACTIONS (3)
  - Skin exfoliation [Recovered/Resolved]
  - Skin mass [Recovered/Resolved]
  - Pruritus [Recovered/Resolved]
